FAERS Safety Report 23322827 (Version 2)
Quarter: 2023Q4

REPORT INFORMATION
  Report Type: Spontaneous
  Country: CH (occurrence: CH)
  Receive Date: 20231220
  Receipt Date: 20231222
  Transmission Date: 20240110
  Serious: Yes (Life-Threatening, Hospitalization, Other)
  Sender: FDA-Public Use
  Company Number: None

PATIENT
  Age: 65 Year
  Sex: Male

DRUGS (8)
  1. OPDIVO [Suspect]
     Active Substance: NIVOLUMAB
     Indication: Adenocarcinoma gastric
     Route: 041
     Dates: start: 20221117, end: 20230317
  2. ELOXATIN [Concomitant]
     Active Substance: OXALIPLATIN
     Indication: Adenocarcinoma gastric
     Route: 041
     Dates: start: 20230920
  3. ELOXATIN [Concomitant]
     Active Substance: OXALIPLATIN
     Dosage: 85 MG/M2 D1 Q2 WKS PERFORMED 8 TREATMENT CYCLES FROM 17-NOV-2022 TO 17-MAR-2023, THEN RESUMED ON SEV
     Route: 041
     Dates: start: 20221117, end: 20230317
  4. LEUCOVORIN CALCIUM [Concomitant]
     Active Substance: LEUCOVORIN CALCIUM
     Indication: Adenocarcinoma gastric
     Dosage: 200 MG/M2 D1 Q2 WKS?.
     Route: 041
     Dates: start: 20230920
  5. FLUOROURACIL [Concomitant]
     Active Substance: FLUOROURACIL
     Indication: Adenocarcinoma gastric
     Dosage: 400 MG/M2 D1 Q2 WKS
     Route: 040
     Dates: start: 20230920
  6. FLUOROURACIL [Concomitant]
     Active Substance: FLUOROURACIL
     Dosage: 1200 MG/M2 INFUSIONE CONTINUA 24H D1 E D2 Q2 WKS
     Route: 041
     Dates: start: 20230920
  7. FLUOROURACIL [Concomitant]
     Active Substance: FLUOROURACIL
     Dosage: 1200 MG/M2 CONTINUOUS INFUSION 24H D1 AND D2 Q2 WKS PERFORMED 8 CYCLES OF TREATMENT FROM 17-NOV-2022
     Route: 041
     Dates: start: 20221117
  8. HYDROCHLOROTHIAZIDE\LOSARTAN [Concomitant]
     Active Substance: HYDROCHLOROTHIAZIDE\LOSARTAN
     Indication: Hypertension
     Dosage: 100/12.5 MG
     Route: 048

REACTIONS (2)
  - Myocarditis [Recovering/Resolving]
  - Cardiac failure [Recovering/Resolving]

NARRATIVE: CASE EVENT DATE: 20231101
